FAERS Safety Report 20742242 (Version 1)
Quarter: 2022Q2

REPORT INFORMATION
  Report Type: Spontaneous
  Country: US (occurrence: US)
  Receive Date: 20220423
  Receipt Date: 20220423
  Transmission Date: 20220720
  Serious: Yes (Hospitalization, Other)
  Sender: FDA-Public Use
  Company Number: US-NOVITIUMPHARMA-2022USNVP00065

PATIENT
  Age: 73 Year
  Sex: Male

DRUGS (1)
  1. OXYBUTYNIN CHLORIDE [Suspect]
     Active Substance: OXYBUTYNIN CHLORIDE
     Indication: Urinary incontinence

REACTIONS (2)
  - Intentional product misuse [Unknown]
  - Delirium [Recovering/Resolving]
